FAERS Safety Report 7277700-1 (Version None)
Quarter: 2011Q1

REPORT INFORMATION
  Report Type: 
  Country: None (occurrence: None)
  Receive Date: 20110131
  Receipt Date: 20110118
  Transmission Date: 20110831
  Serious: Yes (Hospitalization)
  Sender: FDA-Public Use
  Company Number: AR-001478

PATIENT
  Sex: Female

DRUGS (3)
  1. AEROTROMIXIMA (ALL OTHER THERAPEUTIC PRODUCTS) [Concomitant]
  2. NAGLAZYME [Suspect]
     Indication: MUCOPOLYSACCHARIDOSIS VI
     Dosage: 4 VIALS INTRAVENOUS DRIP
     Route: 041
     Dates: start: 20101112
  3. CARDIAC THERAPY (CARDIAC THERAPY) [Concomitant]

REACTIONS (1)
  - GASTROINTESTINAL INFECTION [None]
